FAERS Safety Report 7446005-8 (Version None)
Quarter: 2011Q2

REPORT INFORMATION
  Report Type: 
  Country: None (occurrence: None)
  Receive Date: 20110429
  Receipt Date: 20110419
  Transmission Date: 20111010
  Serious: Yes (Death)
  Sender: FDA-Public Use
  Company Number: US-GENZYME-CLOF-1001574

PATIENT
  Age: 30 Year
  Sex: Male

DRUGS (9)
  1. BUSULFAN [Suspect]
     Indication: ACUTE LYMPHOCYTIC LEUKAEMIA
     Dosage: 0.8 MG/KG, QID OVER 2 DAYS, DAY -7 TO -4
     Route: 042
  2. ACYCLOVIR [Concomitant]
     Indication: PROPHYLAXIS AGAINST GRAFT VERSUS HOST DISEASE
  3. BUSULFAN [Suspect]
     Indication: STEM CELL TRANSPLANT
  4. TACROLIMUS [Concomitant]
     Indication: PROPHYLAXIS AGAINST GRAFT VERSUS HOST DISEASE
     Dosage: STARTING DAY -3
  5. CIPROFLOXACIN [Concomitant]
     Indication: PROPHYLAXIS AGAINST GRAFT VERSUS HOST DISEASE
  6. FLUCONAZOLE [Concomitant]
     Indication: PROPHYLAXIS
  7. SIROLIMUS [Concomitant]
     Indication: PROPHYLAXIS AGAINST GRAFT VERSUS HOST DISEASE
     Dosage: STARTING DAY -3
  8. CLOLAR [Suspect]
     Indication: ACUTE LYMPHOCYTIC LEUKAEMIA
     Dosage: 50 MG/KG, QD OVER 1 HOUR, DAYS -6 TO -2
     Route: 042
  9. CLOLAR [Suspect]
     Indication: STEM CELL TRANSPLANT

REACTIONS (1)
  - ACUTE LYMPHOCYTIC LEUKAEMIA [None]
